FAERS Safety Report 11048353 (Version 4)
Quarter: 2015Q2

REPORT INFORMATION
  Report Type: Spontaneous
  Country: US (occurrence: US)
  Receive Date: 20150420
  Receipt Date: 20150528
  Transmission Date: 20150821
  Serious: Yes (Hospitalization)
  Sender: FDA-Public Use
  Company Number: US-BIOGENIDEC-2015BI049081

PATIENT
  Age: 45 Year
  Sex: Female

DRUGS (5)
  1. TECFIDERA [Suspect]
     Active Substance: DIMETHYL FUMARATE
     Indication: MULTIPLE SCLEROSIS
     Route: 048
     Dates: start: 20150417
  2. TECFIDERA [Suspect]
     Active Substance: DIMETHYL FUMARATE
     Indication: MULTIPLE SCLEROSIS
     Route: 048
     Dates: start: 20150513
  3. TECFIDERA [Suspect]
     Active Substance: DIMETHYL FUMARATE
     Indication: MULTIPLE SCLEROSIS
     Route: 048
     Dates: start: 20140909, end: 20150412
  4. PRILOSEC [Concomitant]
     Active Substance: OMEPRAZOLE MAGNESIUM
  5. IRON [Concomitant]
     Active Substance: IRON

REACTIONS (11)
  - Gastrointestinal haemorrhage [Recovered/Resolved]
  - Nausea [Not Recovered/Not Resolved]
  - Migraine [Unknown]
  - Anaemia [Recovered/Resolved]
  - Vomiting [Not Recovered/Not Resolved]
  - Mouth haemorrhage [Unknown]
  - White blood cell count abnormal [Unknown]
  - Flushing [Not Recovered/Not Resolved]
  - Haemorrhage [Unknown]
  - Dysgeusia [Unknown]
  - Epistaxis [Unknown]

NARRATIVE: CASE EVENT DATE: 20150405
